FAERS Safety Report 6979670-X (Version None)
Quarter: 2010Q3

REPORT INFORMATION
  Report Type: 
  Country: None (occurrence: None)
  Receive Date: 20100908
  Receipt Date: 20100824
  Transmission Date: 20110219
  Serious: Yes (Death, Hospitalization, Other)
  Sender: FDA-Public Use
  Company Number: A-CH2010-24195

PATIENT
  Age: 58 Year
  Sex: Female
  Weight: 60 kg

DRUGS (9)
  1. TRACLEER [Suspect]
     Indication: PULMONARY ARTERIAL HYPERTENSION
     Dosage: 125 MG, BID, ORAL
     Route: 048
     Dates: start: 20070201, end: 20090301
  2. VENTAVIS [Suspect]
     Indication: PULMONARY ARTERIAL HYPERTENSION
     Dosage: 30 ?G, SINGLE, RESPIRATORY
     Route: 055
     Dates: start: 20090319
  3. SINTROM [Suspect]
  4. FUROSEMIDE [Suspect]
     Dosage: ORAL
     Route: 048
     Dates: start: 19850101
  5. SPIRONOLACTONE [Suspect]
     Dosage: ORAL
     Route: 048
     Dates: start: 20081006
  6. CHLORTHALIDONE [Suspect]
     Dosage: ORAL
     Route: 048
     Dates: start: 20081001
  7. VERAPAMIL HYDROCHLORIDE [Concomitant]
  8. ATARAX [Concomitant]
  9. REVATIO [Concomitant]

REACTIONS (12)
  - ASCITES [None]
  - COUGH [None]
  - DISEASE PROGRESSION [None]
  - DRUG INTERACTION [None]
  - EPISTAXIS [None]
  - HAEMATOMA [None]
  - HYPOACUSIS [None]
  - INTERNATIONAL NORMALISED RATIO INCREASED [None]
  - PULMONARY ARTERIAL HYPERTENSION [None]
  - RASH [None]
  - URTICARIA [None]
  - WEIGHT DECREASED [None]
